FAERS Safety Report 16118497 (Version 1)
Quarter: 2019Q1

REPORT INFORMATION
  Report Type: Spontaneous
  Country: FR (occurrence: FR)
  Receive Date: 20190326
  Receipt Date: 20190326
  Transmission Date: 20190418
  Serious: Yes (Hospitalization)
  Sender: FDA-Public Use
  Company Number: FR-ASTRAZENECA-2019SE44107

PATIENT
  Age: 69 Year
  Sex: Male
  Weight: 58.9 kg

DRUGS (10)
  1. MOXONIDINE [Concomitant]
     Active Substance: MOXONIDINE
  2. ATORVASTATIN [Concomitant]
     Active Substance: ATORVASTATIN
  3. EUPRESSYL [Concomitant]
     Active Substance: URAPIDIL
  4. GLIBENCLAMIDE [Concomitant]
     Active Substance: GLYBURIDE
  5. JANUMET [Concomitant]
     Active Substance: METFORMIN HYDROCHLORIDE\SITAGLIPTIN PHOSPHATE
  6. BRILIQUE [Suspect]
     Active Substance: TICAGRELOR
     Indication: ACUTE CORONARY SYNDROME
     Route: 048
     Dates: start: 20181001, end: 20181002
  7. EXFORGE [Concomitant]
     Active Substance: AMLODIPINE BESYLATE\VALSARTAN
  8. PANTOPRAZOLE [Concomitant]
     Active Substance: PANTOPRAZOLE
  9. BISOCE [Concomitant]
     Active Substance: BISOPROLOL
  10. KARDEGIC [Suspect]
     Active Substance: ASPIRIN DL-LYSINE
     Indication: ACUTE CORONARY SYNDROME
     Route: 048
     Dates: start: 20181001, end: 20181002

REACTIONS (2)
  - Intracranial mass [Recovered/Resolved]
  - Subdural haematoma [Recovered/Resolved]

NARRATIVE: CASE EVENT DATE: 20181002
